FAERS Safety Report 5383341-3 (Version None)
Quarter: 2007Q3

REPORT INFORMATION
  Report Type: 
  Country: None (occurrence: None)
  Receive Date: 20070710
  Receipt Date: 20070628
  Transmission Date: 20080115
  Serious: Yes (Other)
  Sender: FDA-Public Use
  Company Number: US-PFIZER INC-2007054081

PATIENT
  Sex: Male
  Weight: 79.545 kg

DRUGS (5)
  1. LYRICA [Suspect]
     Indication: HERPES ZOSTER
  2. LIPITOR [Concomitant]
  3. METFORMIN HCL [Concomitant]
  4. INSULIN [Concomitant]
  5. ASPIRIN [Concomitant]

REACTIONS (4)
  - ABASIA [None]
  - ASTHENIA [None]
  - GAIT DISTURBANCE [None]
  - MUSCLE SPASTICITY [None]
